FAERS Safety Report 5900820-8 (Version None)
Quarter: 2008Q3

REPORT INFORMATION
  Report Type: 
  Country: None (occurrence: None)
  Receive Date: 20080929
  Receipt Date: 20080917
  Transmission Date: 20090109
  Serious: Yes (Death)
  Sender: FDA-Public Use
  Company Number: BR-JNJFOC-20080904094

PATIENT
  Age: 13 Year
  Sex: Female

DRUGS (2)
  1. INFLIXIMAB [Suspect]
     Indication: GRAFT VERSUS HOST DISEASE
     Dosage: 3 INFUSIONS
     Route: 042
  2. METHYLPREDNISOLONE [Concomitant]

REACTIONS (1)
  - SEPSIS [None]
